FAERS Safety Report 6547427-X (Version None)
Quarter: 2010Q1

REPORT INFORMATION
  Report Type: 
  Country: None (occurrence: None)
  Receive Date: 20100122
  Receipt Date: 20100118
  Transmission Date: 20100710
  Serious: Yes (Death, Other)
  Sender: FDA-Public Use
  Company Number: PHEH2008US04764

PATIENT
  Sex: Male

DRUGS (20)
  1. ZOMETA [Suspect]
     Dosage: MONTHLY
     Dates: start: 20040101
  2. LIPITOR [Concomitant]
  3. ZOLOFT [Concomitant]
  4. COUMADIN [Concomitant]
  5. AMIODARONE [Concomitant]
     Indication: ATRIAL FIBRILLATION
     Dosage: 400 MG, TID
     Route: 048
  6. DIGOXIN [Concomitant]
     Dosage: 0.25 MG, UNK
  7. CARDIZEM [Concomitant]
  8. ACCUPRIL [Concomitant]
  9. TARCEVA [Concomitant]
     Dosage: 150 MG DAILY
     Dates: start: 20050120
  10. DURAGESIC-100 [Concomitant]
     Dosage: PATCH 50 MCG
  11. NORTRIPTYLINE [Concomitant]
     Dosage: 50 MG
  12. ZOLOFT [Concomitant]
     Dosage: 100 MG
  13. NEURONTIN [Concomitant]
     Dosage: UNK
  14. KEFLEX [Concomitant]
     Dosage: 500 MG THREE TIMES DAILY
     Dates: start: 20071220
  15. CLINDAMYCIN HYDROCHLORIDE [Concomitant]
     Dosage: UNK
     Dates: start: 20071211
  16. AVASTIN [Concomitant]
     Dosage: UNK
  17. CARBOPLATIN [Concomitant]
     Dosage: UNK
  18. TAXOL [Concomitant]
     Dosage: UNK
  19. GEMZAR [Concomitant]
     Dosage: 750 MG
     Dates: start: 20070621
  20. MORPHINE [Concomitant]
     Dosage: UNK

REACTIONS (23)
  - ABSCESS [None]
  - ANHEDONIA [None]
  - ANXIETY [None]
  - ASTHENIA [None]
  - BACK PAIN [None]
  - DEPRESSED MOOD [None]
  - DEPRESSION [None]
  - HYPERLIPIDAEMIA [None]
  - INJURY [None]
  - INSOMNIA [None]
  - MALIGNANT NEOPLASM PROGRESSION [None]
  - METASTASIS [None]
  - OSTEOARTHRITIS [None]
  - OSTEONECROSIS [None]
  - PAIN [None]
  - PAIN IN JAW [None]
  - PULMONARY EMBOLISM [None]
  - SINUS HEADACHE [None]
  - SWELLING [None]
  - TOOTH EXTRACTION [None]
  - TOOTH INJURY [None]
  - TOOTHACHE [None]
  - URINARY RETENTION [None]
